FAERS Safety Report 4933249-X (Version None)
Quarter: 2006Q1

REPORT INFORMATION
  Report Type: 
  Country: None (occurrence: None)
  Receive Date: 20060306
  Receipt Date: 20050815
  Transmission Date: 20060701
  Serious: Yes (Hospitalization, Other)
  Sender: FDA-Public Use
  Company Number: US-MERCK-0508USA02933

PATIENT
  Age: 63 Year
  Sex: Male
  Weight: 85 kg

DRUGS (30)
  1. VIOXX [Suspect]
     Indication: ARTHRITIS
     Route: 048
     Dates: start: 19991201, end: 20040801
  2. NITROSTAT [Concomitant]
     Indication: ANGINA PECTORIS
     Route: 065
     Dates: start: 19940101, end: 20000901
  3. ASPIRIN [Concomitant]
     Indication: CORONARY ARTERY DISEASE
     Route: 065
     Dates: start: 20000101, end: 20051113
  4. PAMELOR [Concomitant]
     Indication: DEPRESSION
     Route: 065
     Dates: start: 19960401, end: 20000801
  5. NORTRIPTYLINE [Concomitant]
     Indication: DEPRESSION
     Route: 065
     Dates: start: 20000401, end: 20000801
  6. AMOXICILLIN [Concomitant]
     Route: 065
  7. PROCARDIA XL [Concomitant]
     Route: 065
  8. PROZAC [Concomitant]
     Route: 065
  9. POTASSIUM CHLORIDE [Concomitant]
     Route: 065
  10. PROSCAR [Concomitant]
     Route: 048
  11. AMBIEN [Concomitant]
     Route: 065
  12. FLONASE [Concomitant]
     Route: 065
  13. LASIX [Concomitant]
     Route: 065
  14. COUMADIN [Concomitant]
     Route: 065
  15. MAG-OX 400 TABLETS [Concomitant]
     Route: 065
  16. ZESTRIL [Concomitant]
     Route: 065
  17. TOPROL-XL [Concomitant]
     Route: 065
  18. PLAVIX [Concomitant]
     Route: 065
  19. LEVAQUIN [Concomitant]
     Route: 065
  20. ZITHROMAX [Concomitant]
     Route: 065
  21. NIFEREX [Concomitant]
     Route: 065
  22. CIPRO [Concomitant]
     Route: 065
  23. DETROL [Concomitant]
     Route: 065
  24. SOTALOL HYDROCHLORIDE [Concomitant]
     Route: 065
  25. ADVAIR DISKUS 100/50 [Concomitant]
     Route: 065
  26. FLUOXETINE [Concomitant]
     Route: 065
  27. PRINIVIL [Concomitant]
     Route: 048
  28. PROTONIX [Concomitant]
     Route: 065
  29. MEVACOR [Concomitant]
     Route: 048
  30. PINDOLOL [Concomitant]
     Route: 065

REACTIONS (21)
  - ATRIAL FIBRILLATION [None]
  - BACK PAIN [None]
  - BASAL CELL CARCINOMA [None]
  - BLADDER DISORDER [None]
  - BRADYCARDIA [None]
  - CARDIAC DISORDER [None]
  - CARDIAC FAILURE CONGESTIVE [None]
  - CEREBROVASCULAR ACCIDENT [None]
  - CHRONIC OBSTRUCTIVE PULMONARY DISEASE [None]
  - CORONARY ARTERY DISEASE [None]
  - DYSPNOEA [None]
  - EMOTIONAL DISTRESS [None]
  - HEART RATE DECREASED [None]
  - MALIGNANT MELANOMA [None]
  - MYOCARDIAL INFARCTION [None]
  - PLEURAL EFFUSION [None]
  - PNEUMONIA [None]
  - RESPIRATORY TRACT CONGESTION [None]
  - TACHYCARDIA [None]
  - THROMBOSIS [None]
  - URETERAL DISORDER [None]
